FAERS Safety Report 7758488-4 (Version None)
Quarter: 2011Q3

REPORT INFORMATION
  Report Type: 
  Country: None (occurrence: None)
  Receive Date: 20110919
  Receipt Date: 20110815
  Transmission Date: 20111222
  Serious: Yes (Other)
  Sender: FDA-Public Use
  Company Number: US-US-EMD SERONO, INC.-7083008

PATIENT
  Sex: Female

DRUGS (6)
  1. BACLOFEN [Concomitant]
     Indication: MUSCLE SPASTICITY
  2. DRISDOL [Concomitant]
  3. SAIZEN [Suspect]
     Indication: HYPOPITUITARISM
     Dosage: 0.25 MG/KG/DAY
     Dates: end: 20100801
  4. SYNTHROID [Concomitant]
     Indication: HYPOTHYROIDISM
  5. KEPPRA [Concomitant]
     Indication: CONVULSION
  6. LUPRON (LEUPROLIDE) [Concomitant]

REACTIONS (1)
  - SCOLIOSIS [None]
